FAERS Safety Report 16749613 (Version 2)
Quarter: 2019Q3

REPORT INFORMATION
  Report Type: Spontaneous
  Country: US (occurrence: US)
  Receive Date: 20190828
  Receipt Date: 20190930
  Transmission Date: 20191005
  Serious: No
  Sender: FDA-Public Use
  Company Number: US-VERTEX PHARMACEUTICALS-2019-008022

PATIENT
  Sex: Female

DRUGS (17)
  1. CREON [Concomitant]
     Active Substance: PANCRELIPASE AMYLASE\PANCRELIPASE LIPASE\PANCRELIPASE PROTEASE
  2. NOVOLOG [Concomitant]
     Active Substance: INSULIN ASPART
  3. PULMOZYME [Concomitant]
     Active Substance: DORNASE ALFA
  4. SALINE [SODIUM CHLORIDE] [Concomitant]
     Active Substance: SODIUM CHLORIDE
  5. MAGNESIUM [Concomitant]
     Active Substance: MAGNESIUM
  6. MIRALAX [Concomitant]
     Active Substance: POLYETHYLENE GLYCOL 3350
  7. NASONEX [Concomitant]
     Active Substance: MOMETASONE FUROATE
  8. ZYVOX [Concomitant]
     Active Substance: LINEZOLID
  9. VITAMIN K [MENADIONE] [Concomitant]
     Active Substance: MENADIONE
  10. TOBI [Concomitant]
     Active Substance: TOBRAMYCIN
  11. SYMDEKO [Suspect]
     Active Substance: IVACAFTOR\TEZACAFTOR
     Indication: CYSTIC FIBROSIS
     Dosage: TEZACAFTOR 100 MG, IVACAFTOR 150 MG, IVACAFTOR 150 MG, BID
     Route: 048
     Dates: start: 20180929
  12. HYDROCODONE BITARTRATE AND ACETAMINOPHEN [Concomitant]
     Active Substance: ACETAMINOPHEN\HYDROCODONE BITARTRATE
  13. AZITHROMYCIN ANHYDROUS. [Concomitant]
     Active Substance: AZITHROMYCIN ANHYDROUS
  14. LEVOFLOXACIN. [Concomitant]
     Active Substance: LEVOFLOXACIN
  15. LANTUS [Concomitant]
     Active Substance: INSULIN GLARGINE
  16. PREVACID [Concomitant]
     Active Substance: LANSOPRAZOLE
  17. ALBUTEROL [SALBUTAMOL] [Concomitant]
     Active Substance: ALBUTEROL

REACTIONS (1)
  - Malaise [Not Recovered/Not Resolved]

NARRATIVE: CASE EVENT DATE: 2019
